FAERS Safety Report 15509717 (Version 1)
Quarter: 2018Q4

REPORT INFORMATION
  Report Type: Spontaneous
  Country: US (occurrence: US)
  Receive Date: 20181010
  Receipt Date: 20181010
  Transmission Date: 20190205
  Serious: Yes (Hospitalization)
  Sender: FDA-Public Use
  Company Number: None

PATIENT
  Age: 85 Year
  Sex: Male
  Weight: 78 kg

DRUGS (1)
  1. XARELTO [Suspect]
     Active Substance: RIVAROXABAN

REACTIONS (2)
  - Epistaxis [None]
  - Haemoptysis [None]
